FAERS Safety Report 8220980-6 (Version None)
Quarter: 2012Q1

REPORT INFORMATION
  Report Type: 
  Country: None (occurrence: None)
  Receive Date: 20120320
  Receipt Date: 20120306
  Transmission Date: 20120608
  Serious: Yes (Life-Threatening)
  Sender: FDA-Public Use
  Company Number: DE-MYLANLABS-2012S1005193

PATIENT
  Age: 81 Year
  Sex: Female

DRUGS (7)
  1. SERTRALINE HYDROCHLORIDE [Suspect]
     Route: 048
     Dates: start: 20111202
  2. ZYPREXA [Suspect]
     Indication: PRODUCT USED FOR UNKNOWN INDICATION
     Route: 048
  3. MELPERONE [Suspect]
     Indication: PRODUCT USED FOR UNKNOWN INDICATION
     Route: 048
     Dates: start: 20111124, end: 20111125
  4. MELPERONE [Suspect]
     Route: 048
     Dates: start: 20111205
  5. SERTRALINE HYDROCHLORIDE [Suspect]
     Indication: PRODUCT USED FOR UNKNOWN INDICATION
     Route: 048
     Dates: start: 20111118, end: 20111122
  6. SERTRALINE HYDROCHLORIDE [Suspect]
     Route: 048
     Dates: start: 20111123, end: 20111201
  7. MELPERONE [Suspect]
     Route: 048
     Dates: start: 20111126, end: 20111204

REACTIONS (7)
  - CARDIAC DISORDER [None]
  - ATRIAL FLUTTER [None]
  - ATRIAL FIBRILLATION [None]
  - GASTROENTERITIS NOROVIRUS [None]
  - CIRCULATORY COLLAPSE [None]
  - EXTRASYSTOLES [None]
  - DEHYDRATION [None]
